FAERS Safety Report 16112133 (Version 1)
Quarter: 2019Q1

REPORT INFORMATION
  Report Type: Spontaneous
  Country: US (occurrence: US)
  Receive Date: 20190325
  Receipt Date: 20190325
  Transmission Date: 20190418
  Serious: Yes (Other)
  Sender: FDA-Public Use
  Company Number: US-JIANGSU HENGRUI MEDICINE CO., LTD.-2064493

PATIENT
  Age: 17 Year
  Sex: Male
  Weight: 79.55 kg

DRUGS (6)
  1. CYCLOPHOSPHAMIDE FOR INJECTION USP, 500 MG, 1 G AND 2 G PER SINGLE-DOS [Suspect]
     Active Substance: CYCLOPHOSPHAMIDE
     Indication: ACUTE LYMPHOCYTIC LEUKAEMIA
  2. METHOTREXATE. [Suspect]
     Active Substance: METHOTREXATE
  3. PEGASPARGASE [Suspect]
     Active Substance: PEGASPARGASE
  4. INCB018424 [Suspect]
     Active Substance: RUXOLITINIB
  5. VINCRISTINE [Suspect]
     Active Substance: VINCRISTINE
  6. CYTARABINE. [Suspect]
     Active Substance: CYTARABINE

REACTIONS (3)
  - Hypertriglyceridaemia [Recovering/Resolving]
  - Hypertriglyceridaemia [Recovered/Resolved]
  - Hyperkalaemia [Recovering/Resolving]

NARRATIVE: CASE EVENT DATE: 20181029
